FAERS Safety Report 4949774-1 (Version None)
Quarter: 2006Q1

REPORT INFORMATION
  Report Type: 
  Country: None (occurrence: None)
  Receive Date: 20060315
  Receipt Date: 20060224
  Transmission Date: 20060701
  Serious: Yes (Other)
  Sender: FDA-Public Use
  Company Number: FR200602005059

PATIENT
  Age: 85 Year
  Sex: Female

DRUGS (6)
  1. FORTEO [Suspect]
     Indication: OSTEOPOROSIS
     Dosage: 20 UG, DAILY (1/D), SUBCUTANEOUS
     Route: 058
     Dates: start: 20041212, end: 20051001
  2. FORTEO [Concomitant]
  3. CORDARONE [Concomitant]
  4. CORTISONE ACETATE [Concomitant]
  5. AMLODIPINE BESYLATE [Concomitant]
  6. ZOCOR [Concomitant]

REACTIONS (1)
  - BREAST CANCER FEMALE [None]
